FAERS Safety Report 5066058-4 (Version None)
Quarter: 2006Q3

REPORT INFORMATION
  Report Type: 
  Country: None (occurrence: None)
  Receive Date: 20060731
  Receipt Date: 20060731
  Transmission Date: 20061208
  Serious: No
  Sender: FDA-Public Use
  Company Number: None

PATIENT
  Sex: Male
  Weight: 81.6475 kg

DRUGS (1)
  1. SULFASALAZINE PHARMACIA AND UPJOHN [Suspect]
     Indication: COLITIS ULCERATIVE
     Dosage: 500 MG 2-4 TIMES A DAY PO
     Route: 048

REACTIONS (2)
  - SPERMATOZOA ABNORMAL [None]
  - TESTICULAR ATROPHY [None]
